FAERS Safety Report 6237415-5 (Version None)
Quarter: 2009Q2

REPORT INFORMATION
  Report Type: 
  Country: None (occurrence: None)
  Receive Date: 20090619
  Receipt Date: 20090601
  Transmission Date: 20091009
  Serious: Yes (Other)
  Sender: FDA-Public Use
  Company Number: US-ALEXION-A200900441

PATIENT
  Sex: Male

DRUGS (10)
  1. SOLIRIS [Suspect]
     Indication: PAROXYSMAL NOCTURNAL HAEMOGLOBINURIA
     Dosage: 600 MG, QW
     Route: 042
     Dates: start: 20070521
  2. SOLIRIS [Suspect]
     Dosage: 900 MG, Q2W
     Route: 042
     Dates: start: 20070618
  3. SOLIRIS [Suspect]
     Dosage: 900 MG, Q12D
     Route: 042
  4. NASONEX [Concomitant]
     Dosage: UNK
     Route: 045
  5. SINGULAIR [Concomitant]
     Dosage: UNK
     Route: 048
  6. FOLIC ACID [Concomitant]
     Dosage: UNK
     Route: 048
  7. PRILOSEC [Concomitant]
     Dosage: UNK
     Route: 048
  8. ZANTAC                             /00550802/ [Concomitant]
     Dosage: UNK
     Route: 048
  9. VITAMIN B-12 [Concomitant]
     Dosage: UNK
     Route: 048
  10. CALCITRIOL [Concomitant]
     Dosage: 25 UG, QD
     Route: 048

REACTIONS (2)
  - COUGH [None]
  - UPPER RESPIRATORY TRACT INFECTION [None]
